FAERS Safety Report 6143349-7 (Version None)
Quarter: 2009Q2

REPORT INFORMATION
  Report Type: 
  Country: None (occurrence: None)
  Receive Date: 20090403
  Receipt Date: 20090327
  Transmission Date: 20091009
  Serious: Yes (Hospitalization)
  Sender: FDA-Public Use
  Company Number: B0568297A

PATIENT
  Sex: Female

DRUGS (6)
  1. AUGMENTIN '125' [Suspect]
     Indication: PNEUMONIA
     Dosage: 1G PER DAY
     Route: 048
     Dates: start: 20080601
  2. ENALAPRIL MALEATE [Concomitant]
     Route: 048
  3. DEANXIT [Concomitant]
     Route: 048
  4. INEGY [Concomitant]
     Route: 048
  5. CELLCEPT [Concomitant]
     Route: 048
     Dates: start: 20040101
  6. RAPAMUNE [Concomitant]
     Route: 048
     Dates: start: 20040101

REACTIONS (2)
  - ANGIOEDEMA [None]
  - TYPE III IMMUNE COMPLEX MEDIATED REACTION [None]
